FAERS Safety Report 9287969 (Version 1)
Quarter: 2013Q2

REPORT INFORMATION
  Report Type: Spontaneous
  Country: PT (occurrence: PT)
  Receive Date: 20130514
  Receipt Date: 20130514
  Transmission Date: 20140414
  Serious: Yes (Hospitalization)
  Sender: FDA-Public Use
  Company Number: PT-ROXANE LABORATORIES, INC.-2013-RO-00734RO

PATIENT
  Age: 53 Year
  Sex: Male

DRUGS (2)
  1. CLARITHROMYCIN [Suspect]
     Indication: LEGIONELLA INFECTION
     Dosage: 1000 MG
  2. CLARITHROMYCIN [Suspect]

REACTIONS (2)
  - Mania [Recovered/Resolved]
  - Substance-induced mood disorder [Recovered/Resolved]
